FAERS Safety Report 5513611-7 (Version None)
Quarter: 2007Q4

REPORT INFORMATION
  Report Type: 
  Country: None (occurrence: None)
  Receive Date: 20071112
  Receipt Date: 20071105
  Transmission Date: 20080405
  Serious: No
  Sender: FDA-Public Use
  Company Number: GB-BOEHRINGER INGELHEIM PHARMACEUTICALS, INC.-2007-DE-06133GD

PATIENT

DRUGS (1)
  1. TIOTROPIUM-BROMIDE [Suspect]
     Indication: CHRONIC OBSTRUCTIVE PULMONARY DISEASE
     Route: 055

REACTIONS (9)
  - BONE DISORDER [None]
  - CHRONIC OBSTRUCTIVE PULMONARY DISEASE [None]
  - CONTUSION [None]
  - EYE DISORDER [None]
  - GASTROINTESTINAL DISORDER [None]
  - HEADACHE [None]
  - NASOPHARYNGITIS [None]
  - OROPHARYNGEAL CANDIDIASIS [None]
  - PHARYNGOLARYNGEAL PAIN [None]
